FAERS Safety Report 7230263-9 (Version None)
Quarter: 2011Q1

REPORT INFORMATION
  Report Type: 
  Country: None (occurrence: None)
  Receive Date: 20110118
  Receipt Date: 20110106
  Transmission Date: 20110831
  Serious: Yes (Other)
  Sender: FDA-Public Use
  Company Number: US-PFIZER INC-2010133924

PATIENT
  Sex: Male

DRUGS (1)
  1. CHANTIX [Suspect]
     Indication: SMOKING CESSATION THERAPY
     Dosage: UNK
     Dates: start: 20060101, end: 20090101

REACTIONS (6)
  - IRRITABILITY [None]
  - NIGHTMARE [None]
  - INSOMNIA [None]
  - ABNORMAL BEHAVIOUR [None]
  - FRUSTRATION [None]
  - DEPRESSION [None]
